FAERS Safety Report 7778063-5 (Version None)
Quarter: 2011Q3

REPORT INFORMATION
  Report Type: 
  Country: None (occurrence: None)
  Receive Date: 20110922
  Receipt Date: 20110906
  Transmission Date: 20111222
  Serious: Yes (Death, Other)
  Sender: FDA-Public Use
  Company Number: FK201101950

PATIENT
  Age: 59 Year

DRUGS (2)
  1. IRINOTECAN HCL [Suspect]
     Indication: BREAST CANCER METASTATIC
     Dosage: 100 MG/M2, 1 WK
  2. TRASTUZUMAB (TRASTUZUMAB) (TRASTUZUMAB) [Suspect]
     Indication: BREAST CANCER METASTATIC

REACTIONS (3)
  - TOXICITY TO VARIOUS AGENTS [None]
  - SEPSIS [None]
  - NEUTROPENIA [None]
